FAERS Safety Report 6543764-3 (Version None)
Quarter: 2010Q1

REPORT INFORMATION
  Report Type: 
  Country: None (occurrence: None)
  Receive Date: 20100120
  Receipt Date: 20090217
  Transmission Date: 20100710
  Serious: No
  Sender: FDA-Public Use
  Company Number: US-BRISTOL-MYERS SQUIBB COMPANY-14513402

PATIENT
  Age: 62 Year

DRUGS (1)
  1. TRAZODONE HCL [Suspect]

REACTIONS (1)
  - ORTHOSTATIC HYPOTENSION [None]
